FAERS Safety Report 8257611 (Version 2)
Quarter: 2013Q1

REPORT INFORMATION
  Report Type: Spontaneous
  Country: US (occurrence: US)
  Receive Date: 20111121
  Receipt Date: 20130115
  Transmission Date: 20140127
  Serious: Yes (Life-Threatening, Other)
  Sender: FDA-Public Use
  Company Number: PHEH2011US009314

PATIENT
  Age: 56 Year
  Sex: Male

DRUGS (3)
  1. DIOVAN [Suspect]
     Dosage: UNK
  2. PERCOCET [Suspect]
     Dosage: 5.25 MG, 2-6 PER DAY
  3. VALIUM [Concomitant]
     Dosage: 5 MG, ,2-6/ PER DAY

REACTIONS (5)
  - General physical condition abnormal [Unknown]
  - Hypothyroidism [Recovering/Resolving]
  - Pain [Unknown]
  - Somnolence [Unknown]
  - Blood pressure inadequately controlled [Unknown]
